FAERS Safety Report 8294120-1 (Version None)
Quarter: 2012Q2

REPORT INFORMATION
  Report Type: 
  Country: None (occurrence: None)
  Receive Date: 20120413
  Receipt Date: 20120331
  Transmission Date: 20120825
  Serious: Yes (Hospitalization)
  Sender: FDA-Public Use
  Company Number: 2012AP000918

PATIENT
  Age: 30 Year
  Sex: Male

DRUGS (7)
  1. CLONAZEPAM [Suspect]
     Indication: ANXIETY
     Dosage: 0.5 MG;BID ; 1 MG;BID
  2. DOXYCYCLINE [Concomitant]
  3. VANCOMYCIN [Concomitant]
  4. SERTRALINE HYDROCHLORIDE [Suspect]
     Indication: PRODUCT USED FOR UNKNOWN INDICATION
     Dosage: 50 MG;QD
  5. METOCLOPRAMIDE [Suspect]
     Indication: NAUSEA
     Dosage: 10 MG;BID
  6. METOCLOPRAMIDE [Suspect]
     Indication: VOMITING
     Dosage: 10 MG;BID
  7. METRONIDAZOLE [Concomitant]

REACTIONS (14)
  - SUICIDAL IDEATION [None]
  - VOMITING [None]
  - RESTLESSNESS [None]
  - HOMICIDAL IDEATION [None]
  - ALANINE AMINOTRANSFERASE INCREASED [None]
  - AGITATION [None]
  - ANXIETY [None]
  - VIOLENCE-RELATED SYMPTOM [None]
  - INSOMNIA [None]
  - NAUSEA [None]
  - DIARRHOEA [None]
  - BLOOD PRESSURE INCREASED [None]
  - TACHYPHRENIA [None]
  - PHOTOPSIA [None]
